FAERS Safety Report 6314678-9 (Version None)
Quarter: 2009Q3

REPORT INFORMATION
  Report Type: 
  Country: None (occurrence: None)
  Receive Date: 20090819
  Receipt Date: 20090811
  Transmission Date: 20100115
  Serious: Yes (Death)
  Sender: FDA-Public Use
  Company Number: DE-AVENTIS-200912055DE

PATIENT
  Age: 74 Year
  Sex: Male

DRUGS (3)
  1. TAXOTERE [Suspect]
     Route: 042
     Dates: start: 20090226, end: 20090728
  2. DEXAMETHASONE TAB [Concomitant]
     Indication: PROPHYLAXIS
     Route: 048
     Dates: start: 20090526, end: 20090728
  3. NAVOBAN [Concomitant]
     Indication: PROPHYLAXIS
     Route: 042
     Dates: start: 20090526, end: 20090728

REACTIONS (3)
  - FATIGUE [None]
  - GENERAL PHYSICAL HEALTH DETERIORATION [None]
  - VOMITING [None]
